FAERS Safety Report 20698965 (Version 7)
Quarter: 2022Q4

REPORT INFORMATION
  Report Type: Report from Study
  Country: US (occurrence: US)
  Receive Date: 20220412
  Receipt Date: 20221228
  Transmission Date: 20230112
  Serious: Yes (Hospitalization, Other)
  Sender: FDA-Public Use
  Company Number: US-BoehringerIngelheim-2021-BI-104440

PATIENT
  Sex: Male

DRUGS (4)
  1. OFEV [Suspect]
     Active Substance: NINTEDANIB
     Indication: Idiopathic pulmonary fibrosis
     Route: 048
     Dates: start: 20210413, end: 20210615
  2. OFEV [Suspect]
     Active Substance: NINTEDANIB
     Route: 048
     Dates: start: 20210714
  3. OPSUMIT [Concomitant]
     Active Substance: MACITENTAN
     Indication: Product used for unknown indication
     Route: 065
  4. ADEMPAS [Concomitant]
     Active Substance: RIOCIGUAT
     Indication: Product used for unknown indication
     Dates: start: 20220806

REACTIONS (24)
  - Fall [Recovering/Resolving]
  - Head injury [Unknown]
  - Cerebral haemorrhage [Unknown]
  - Coronary arterial stent insertion [Unknown]
  - Renal failure [Not Recovered/Not Resolved]
  - Idiopathic pulmonary fibrosis [Unknown]
  - Balance disorder [Unknown]
  - Pain in extremity [Unknown]
  - Muscular weakness [Unknown]
  - Pain [Unknown]
  - Dizziness [Unknown]
  - Urticaria [Not Recovered/Not Resolved]
  - Pruritus [Not Recovered/Not Resolved]
  - Diarrhoea [Not Recovered/Not Resolved]
  - Abdominal pain lower [Unknown]
  - Vomiting [Not Recovered/Not Resolved]
  - Peripheral swelling [Unknown]
  - Dehydration [Unknown]
  - Vomiting [Recovered/Resolved]
  - Memory impairment [Unknown]
  - Weight decreased [Unknown]
  - Decreased appetite [Unknown]
  - Abdominal distension [Unknown]
  - Diarrhoea [Recovered/Resolved]
